FAERS Safety Report 7368548-8 (Version None)
Quarter: 2011Q1

REPORT INFORMATION
  Report Type: 
  Country: None (occurrence: None)
  Receive Date: 20110311
  Receipt Date: 20110308
  Transmission Date: 20110831
  Serious: Yes (Hospitalization, Other)
  Sender: FDA-Public Use
  Company Number: 2011SP007103

PATIENT
  Age: 21 Year
  Sex: Female

DRUGS (2)
  1. MERCILON 28 (DESOGESTREL/ETHINYLESTRADIOL / 00570801/) [Suspect]
     Indication: CONTRACEPTION
     Dosage: 1 DF; QD; PO
     Route: 048
     Dates: start: 20040101, end: 20101215
  2. TRIONETTA [Concomitant]

REACTIONS (1)
  - PULMONARY EMBOLISM [None]
